FAERS Safety Report 10993730 (Version 1)
Quarter: 2015Q2

REPORT INFORMATION
  Report Type: Spontaneous
  Country: US (occurrence: None)
  Receive Date: 20150406
  Receipt Date: 20150406
  Transmission Date: 20150821
  Serious: No
  Sender: FDA-Public Use
  Company Number: None

PATIENT
  Age: 60 Year
  Sex: Female

DRUGS (1)
  1. MYCOPHENOLATE [Suspect]
     Active Substance: MYCOPHENOLIC ACID
     Dosage: DATE OF USE:  SINCE MARCH, STRENGTH: 500MG, DOSE FORM: ORAL, FREQUENCY:  TWICE DAILY
     Route: 048

REACTIONS (2)
  - Rash pruritic [None]
  - Erythema [None]

NARRATIVE: CASE EVENT DATE: 20150309
